FAERS Safety Report 21494438 (Version 1)
Quarter: 2022Q4

REPORT INFORMATION
  Report Type: Spontaneous
  Country: FR (occurrence: FR)
  Receive Date: 20221021
  Receipt Date: 20221021
  Transmission Date: 20230113
  Serious: Yes (Other)
  Sender: FDA-Public Use
  Company Number: None

PATIENT
  Age: 12 Year
  Sex: Female
  Weight: 53 kg

DRUGS (2)
  1. CANNABIDIOL [Interacting]
     Active Substance: CANNABIDIOL
     Indication: Epilepsy
     Dosage: 2,25 ML MATIN ET SOIR
     Route: 048
     Dates: start: 20220305
  2. CLOBAZAM [Interacting]
     Active Substance: CLOBAZAM
     Indication: Epilepsy
     Route: 048
     Dates: start: 20220305

REACTIONS (2)
  - Drug interaction [Recovered/Resolved]
  - Sedation [Recovered/Resolved]

NARRATIVE: CASE EVENT DATE: 20220404
